FAERS Safety Report 4440352-X (Version None)
Quarter: 2004Q3

REPORT INFORMATION
  Report Type: 
  Country: None (occurrence: None)
  Receive Date: 20040831
  Receipt Date: 20040831
  Transmission Date: 20050211
  Serious: Yes (Life-Threatening)
  Sender: FDA-Public Use
  Company Number: None

PATIENT
  Age: 60 Year
  Sex: Female
  Weight: 68 kg

DRUGS (12)
  1. BENZOCAINE SPRAY [Suspect]
     Indication: ECHOCARDIOGRAM
     Dates: start: 20040628, end: 20040628
  2. AMPHOTERICIN B [Concomitant]
  3. METHYLENE BLUE [Concomitant]
  4. DIPHENHYDRAMINE HCL [Concomitant]
  5. FENTANYL TOPICAL PATCH [Concomitant]
  6. METOCLOPRAMIDE [Concomitant]
  7. METOPROLOL [Concomitant]
  8. FUROSEMIDE [Concomitant]
  9. PANTOPRAZOLE [Concomitant]
  10. MIRALAX [Concomitant]
  11. POTASSIUM CHLORIDE [Concomitant]
  12. VENLAFAXINE HCL [Concomitant]

REACTIONS (3)
  - CYANOSIS [None]
  - HYPOXIA [None]
  - POST PROCEDURAL COMPLICATION [None]
